FAERS Safety Report 8425595-2 (Version None)
Quarter: 2012Q2

REPORT INFORMATION
  Report Type: 
  Country: None (occurrence: None)
  Receive Date: 20120531
  Receipt Date: 20120522
  Transmission Date: 20120825
  Serious: Yes (Hospitalization)
  Sender: FDA-Public Use
  Company Number: B0708312A

PATIENT
  Sex: Female

DRUGS (4)
  1. LAMICTAL [Suspect]
     Indication: EPILEPSY
     Dosage: 50 MG / PER DAY / ORAL
     Route: 048
     Dates: start: 20110215, end: 20110302
  2. LAMICTAL [Suspect]
     Indication: EPILEPSY
     Dosage: 25 MG / TWICE PER DAY / ORAL
     Route: 048
     Dates: start: 20110125, end: 20110207
  3. LAMICTAL [Suspect]
     Indication: EPILEPSY
     Dosage: 25 MG / TWICE PER DAY / ORAL
     Route: 048
     Dates: start: 20110208, end: 20110214
  4. VALPROATE SODIUM [Suspect]
     Indication: EPILEPSY
     Dosage: 1200 MG / PER DAY / ORAL
     Route: 048
     Dates: end: 20110302

REACTIONS (7)
  - STEVENS-JOHNSON SYNDROME [None]
  - CONVULSION [None]
  - ERYTHEMA MULTIFORME [None]
  - CHEILITIS [None]
  - PRURITUS GENERALISED [None]
  - DRUG ERUPTION [None]
  - FEELING HOT [None]
